FAERS Safety Report 6536882-7 (Version None)
Quarter: 2010Q1

REPORT INFORMATION
  Report Type: 
  Country: None (occurrence: None)
  Receive Date: 20100113
  Receipt Date: 20100107
  Transmission Date: 20100710
  Serious: Yes (Life-Threatening, Hospitalization, Other)
  Sender: FDA-Public Use
  Company Number: US-GENENTECH-296450

PATIENT
  Sex: Female
  Weight: 55.3 kg

DRUGS (2)
  1. RITUXIMAB [Suspect]
     Indication: B-CELL LYMPHOMA
     Dosage: 680 MG, Q3M
     Route: 042
     Dates: start: 20051020
  2. FLUDARABINE PHOSPHATE [Concomitant]
     Indication: B-CELL LYMPHOMA
     Dosage: UNK
     Dates: start: 20050601

REACTIONS (4)
  - GASTROINTESTINAL NECROSIS [None]
  - RENAL FAILURE [None]
  - SEPSIS [None]
  - SMALL INTESTINAL PERFORATION [None]
